FAERS Safety Report 18228371 (Version 1)
Quarter: 2020Q3

REPORT INFORMATION
  Report Type: Spontaneous
  Country: US (occurrence: US)
  Receive Date: 20200903
  Receipt Date: 20200903
  Transmission Date: 20201103
  Serious: Yes (Life-Threatening)
  Sender: FDA-Public Use
  Company Number: None

PATIENT
  Age: 55 Year
  Sex: Female
  Weight: 94.7 kg

DRUGS (2)
  1. IOHEXOL [Suspect]
     Active Substance: IOHEXOL
     Dosage: ?          OTHER FREQUENCY:ONCE;?
     Route: 013
     Dates: start: 20200619, end: 20200619
  2. VISIPAQUE [Suspect]
     Active Substance: IODIXANOL

REACTIONS (6)
  - Procedural complication [None]
  - Agitation [None]
  - Hypotension [None]
  - Retching [None]
  - Oxygen saturation decreased [None]
  - Contrast media allergy [None]

NARRATIVE: CASE EVENT DATE: 20200619
